FAERS Safety Report 6813282-3 (Version None)
Quarter: 2010Q3

REPORT INFORMATION
  Report Type: 
  Country: None (occurrence: None)
  Receive Date: 20100701
  Receipt Date: 20100624
  Transmission Date: 20110219
  Serious: Yes (Other)
  Sender: FDA-Public Use
  Company Number: US-PFIZER INC-2010079087

PATIENT
  Sex: Male

DRUGS (14)
  1. FLAGYL [Suspect]
     Route: 065
  2. PROCRIT [Suspect]
     Indication: ANAEMIA
     Dosage: 4000 IU, 1 IN 2 WEEKS
     Route: 042
     Dates: start: 20100101
  3. PROCRIT [Suspect]
     Dosage: 4000 IU, 1 IN 1 WEEK
     Dates: start: 20100525
  4. INVIRASE [Concomitant]
     Dosage: 600 MG, 3X/DAY
  5. EPIVIR [Concomitant]
     Indication: ACQUIRED IMMUNODEFICIENCY SYNDROME
     Dosage: 150 MG, 1X/DAY
     Route: 048
  6. ATENOLOL [Concomitant]
     Dosage: 25 MG, 2X/DAY
     Route: 048
  7. FELODIPINE [Concomitant]
     Dosage: UNK MG, UNK
  8. CALCITRIOL [Concomitant]
     Dosage: UNK
  9. BUMETANIDE [Concomitant]
     Dosage: 2 MG, 2X/DAY
  10. ALLOPURINOL [Concomitant]
     Indication: GOUT
     Dosage: 100 MG, 1X/DAY
  11. SODIUM BICARBONATE [Concomitant]
     Dosage: 650 MG, 3X/DAY
  12. SODIUM BICARBONATE [Concomitant]
     Dosage: 650 MG, 4X/DAY
  13. INSULIN [Concomitant]
     Indication: DIABETES MELLITUS
     Dosage: UNK
     Dates: start: 20090101
  14. VITAMIN D [Concomitant]
     Dosage: 2000 IU, 1X/DAY

REACTIONS (10)
  - DEHYDRATION [None]
  - DIARRHOEA [None]
  - DRUG LEVEL INCREASED [None]
  - EOSINOPHIL COUNT INCREASED [None]
  - EYE HAEMORRHAGE [None]
  - EYE INFECTION [None]
  - FULL BLOOD COUNT DECREASED [None]
  - HORDEOLUM [None]
  - INTERNATIONAL NORMALISED RATIO INCREASED [None]
  - PLATELET COUNT DECREASED [None]
